FAERS Safety Report 7086596-2 (Version None)
Quarter: 2010Q4

REPORT INFORMATION
  Report Type: 
  Country: None (occurrence: None)
  Receive Date: 20101105
  Receipt Date: 20101026
  Transmission Date: 20110411
  Serious: Yes (Other)
  Sender: FDA-Public Use
  Company Number: CA-GENENTECH-308932

PATIENT
  Sex: Female

DRUGS (1)
  1. XOLAIR [Suspect]
     Indication: ASTHMA
     Dosage: 300 MG, 1/MONTH
     Route: 058
     Dates: start: 20061002

REACTIONS (6)
  - BRONCHITIS [None]
  - COUGH [None]
  - LUNG INFECTION [None]
  - OBSTRUCTIVE AIRWAYS DISORDER [None]
  - PHARYNGITIS STREPTOCOCCAL [None]
  - PNEUMONIA [None]
